FAERS Safety Report 7920724-9 (Version None)
Quarter: 2011Q4

REPORT INFORMATION
  Report Type: 
  Country: None (occurrence: None)
  Receive Date: 20111117
  Receipt Date: 20111110
  Transmission Date: 20120403
  Serious: Yes (Hospitalization, Other)
  Sender: FDA-Public Use
  Company Number: RU-UCBSA-034743

PATIENT
  Age: 71 Year
  Sex: Male
  Weight: 83 kg

DRUGS (3)
  1. LOSARTAN [Concomitant]
     Indication: HYPERTENSION
     Route: 048
     Dates: start: 20011001
  2. CERTOLIZUMAB PEGOL [Suspect]
     Indication: CROHN'S DISEASE
     Dosage: NO OF DOSES RECEIVED:78
     Route: 058
     Dates: start: 20050510, end: 20110406
  3. CERTOLIZUMAB PEGOL [Suspect]
     Dosage: CDP 870-031;400MG Q2W FOLLOWED BY 400MG Q4W
     Route: 058
     Dates: start: 20041028, end: 20050413

REACTIONS (1)
  - NON-SMALL CELL LUNG CANCER [None]
